FAERS Safety Report 6058400-2 (Version None)
Quarter: 2009Q1

REPORT INFORMATION
  Report Type: 
  Country: None (occurrence: None)
  Receive Date: 20090128
  Receipt Date: 20090128
  Transmission Date: 20090719
  Serious: No
  Sender: FDA-Public Use
  Company Number: None

PATIENT
  Age: 80 Year
  Sex: Male
  Weight: 90.2 kg

DRUGS (4)
  1. RANOLAZINE [Suspect]
     Indication: CARDIOVASCULAR DISORDER
     Dosage: 500 MG EVERY DAY PO
     Route: 048
     Dates: start: 20080804, end: 20080807
  2. RANOLAZINE [Suspect]
     Indication: SURGERY
     Dosage: 500 MG EVERY DAY PO
     Route: 048
     Dates: start: 20080804, end: 20080807
  3. ISOSORBIDE MONONITRATE [Suspect]
     Indication: CARDIOVASCULAR DISORDER
     Dosage: 60 MG EVERY DAY PO
     Route: 048
     Dates: start: 20080804, end: 20080807
  4. ISOSORBIDE MONONITRATE [Suspect]
     Indication: SURGERY
     Dosage: 60 MG EVERY DAY PO
     Route: 048
     Dates: start: 20080804, end: 20080807

REACTIONS (2)
  - DIZZINESS [None]
  - PRESYNCOPE [None]
